FAERS Safety Report 14703625 (Version 2)
Quarter: 2018Q2

REPORT INFORMATION
  Report Type: Report from Study
  Country: US (occurrence: US)
  Receive Date: 20180402
  Receipt Date: 20180404
  Transmission Date: 20180711
  Serious: Yes (Hospitalization)
  Sender: FDA-Public Use
  Company Number: US-TEVA-2018-US-871944

PATIENT
  Sex: Female

DRUGS (1)
  1. AUSTEDO [Suspect]
     Active Substance: DEUTETRABENAZINE
     Indication: TARDIVE DYSKINESIA
     Dosage: NEW/TITRATING
     Route: 065
     Dates: start: 20171228

REACTIONS (3)
  - Ankle fracture [Recovering/Resolving]
  - Drug dose omission [Unknown]
  - Fall [Recovering/Resolving]
